FAERS Safety Report 24724857 (Version 1)
Quarter: 2024Q4

REPORT INFORMATION
  Report Type: Spontaneous
  Country: MX (occurrence: MX)
  Receive Date: 20241212
  Receipt Date: 20241212
  Transmission Date: 20250114
  Serious: Yes (Disabling)
  Sender: LEO PHARM
  Company Number: MX-LEO Pharma-375827

PATIENT
  Sex: Female

DRUGS (1)
  1. CALCIPOTRIENE [Suspect]
     Active Substance: CALCIPOTRIENE
     Indication: Dermatitis atopic

REACTIONS (4)
  - Product use in unapproved indication [Unknown]
  - Skin exfoliation [Unknown]
  - Dermatitis atopic [Unknown]
  - Skin discomfort [Unknown]
